FAERS Safety Report 4478215-6 (Version None)
Quarter: 2004Q4

REPORT INFORMATION
  Report Type: 
  Country: None (occurrence: None)
  Receive Date: 20041014
  Receipt Date: 20041004
  Transmission Date: 20050328
  Serious: Yes (Hospitalization)
  Sender: FDA-Public Use
  Company Number: 209419

PATIENT
  Age: 46 Year
  Sex: Female

DRUGS (3)
  1. HERCEPTIN [Suspect]
     Indication: BREAST CANCER
     Dosage: 348 MG, INTRAVENOUS
     Route: 042
     Dates: start: 20040128, end: 20040723
  2. HERCEPTIN [Suspect]
     Indication: BREAST CANCER
     Dosage: 348 MG, INTRAVENOUS
     Route: 042
     Dates: start: 20040831
  3. ACETAMINOPHEN [Concomitant]

REACTIONS (4)
  - CATHETER RELATED COMPLICATION [None]
  - EJECTION FRACTION DECREASED [None]
  - INTRACARDIAC THROMBUS [None]
  - VENA CAVA THROMBOSIS [None]
